FAERS Safety Report 17997360 (Version 2)
Quarter: 2020Q3

REPORT INFORMATION
  Report Type: Spontaneous
  Country: FR (occurrence: FR)
  Receive Date: 20200708
  Receipt Date: 20200714
  Transmission Date: 20201103
  Serious: Yes (Other)
  Sender: FDA-Public Use
  Company Number: FR-US-PROVELL PHARMACEUTICALS LLC-E2B_90078618

PATIENT
  Sex: Female
  Weight: 59 kg

DRUGS (6)
  1. LEVOTHYROX [Suspect]
     Active Substance: LEVOTHYROXINE
     Dosage: NEW FORMULATION, CHANGED DOSAGE FOR THE FIRST TIME
  2. LEVOTHYROX [Suspect]
     Active Substance: LEVOTHYROXINE
     Dosage: NEW FORMULATION, CHANGED DOSAGE FOR THE SECOND TIME
  3. LEVOTHYROX [Suspect]
     Active Substance: LEVOTHYROXINE
     Dosage: 50 MCG (GERMAN) AND 25 MCG (RUSSIAN)
  4. EUTHYROX [Suspect]
     Active Substance: LEVOTHYROXINE SODIUM
     Indication: AUTOIMMUNE THYROIDITIS
  5. EUTHYROX [Suspect]
     Active Substance: LEVOTHYROXINE SODIUM
     Dosage: DOSE INCREASED
  6. LEVOTHYROX [Suspect]
     Active Substance: LEVOTHYROXINE
     Indication: AUTOIMMUNE THYROIDITIS

REACTIONS (7)
  - Blood thyroid stimulating hormone increased [Unknown]
  - Pain [Unknown]
  - Insomnia [Recovering/Resolving]
  - Weight increased [Unknown]
  - Fatigue [Unknown]
  - Blood thyroid stimulating hormone decreased [Unknown]
  - Suicidal ideation [Unknown]
